FAERS Safety Report 12083650 (Version 3)
Quarter: 2018Q4

REPORT INFORMATION
  Report Type: Spontaneous
  Country: US (occurrence: US)
  Receive Date: 20160217
  Receipt Date: 20181004
  Transmission Date: 20190204
  Serious: Yes (Life-Threatening, Other)
  Sender: FDA-Public Use
  Company Number: US-JNJFOC-20160209638

PATIENT

DRUGS (9)
  1. PROCARBAZINE [Suspect]
     Active Substance: PROCARBAZINE
     Indication: HODGKIN^S DISEASE
     Route: 065
  2. VINBLASTINE [Suspect]
     Active Substance: VINBLASTINE
     Indication: HODGKIN^S DISEASE
     Route: 065
  3. DOXORUBICIN [Suspect]
     Active Substance: DOXORUBICIN
     Indication: HODGKIN^S DISEASE
     Route: 065
  4. DACARBAZINE. [Suspect]
     Active Substance: DACARBAZINE
     Indication: HODGKIN^S DISEASE
     Route: 065
  5. CYCLOPHOSPHAMIDE. [Suspect]
     Active Substance: CYCLOPHOSPHAMIDE
     Indication: HODGKIN^S DISEASE
     Route: 065
  6. ETOPOSIDE. [Suspect]
     Active Substance: ETOPOSIDE
     Indication: HODGKIN^S DISEASE
     Route: 065
  7. BLEOMYCIN [Suspect]
     Active Substance: BLEOMYCIN SULFATE
     Indication: HODGKIN^S DISEASE
     Route: 065
  8. VINCRISTINE [Suspect]
     Active Substance: VINCRISTINE
     Indication: HODGKIN^S DISEASE
     Route: 065
  9. PREDNISONE. [Suspect]
     Active Substance: PREDNISONE
     Indication: HODGKIN^S DISEASE
     Route: 065

REACTIONS (34)
  - Febrile neutropenia [Unknown]
  - Embolism [Unknown]
  - Presyncope [Unknown]
  - Bone pain [Unknown]
  - White blood cell count decreased [Unknown]
  - Infestation [Unknown]
  - Off label use [Unknown]
  - Sepsis [Unknown]
  - Glucose tolerance impaired [Unknown]
  - Anaemia [Unknown]
  - Neutrophil count decreased [Unknown]
  - Kidney infection [Unknown]
  - Pneumonitis [Unknown]
  - Lymphocyte count decreased [Unknown]
  - Peripheral sensory neuropathy [Unknown]
  - Peripheral motor neuropathy [Unknown]
  - Product use in unapproved indication [Unknown]
  - Skin infection [Unknown]
  - Platelet count decreased [Unknown]
  - Left ventricular dysfunction [Unknown]
  - Nausea [Unknown]
  - Dyspnoea [Unknown]
  - Hypoglycaemia [Unknown]
  - Myalgia [Unknown]
  - Stomatitis [Unknown]
  - Vomiting [Unknown]
  - Fatigue [Unknown]
  - Neutropenia [Unknown]
  - Carbon monoxide diffusing capacity decreased [Unknown]
  - CD4 lymphocytes decreased [Unknown]
  - Hyperglycaemia [Unknown]
  - Ejection fraction decreased [Unknown]
  - Infection [Unknown]
  - Constipation [Unknown]
